FAERS Safety Report 17091794 (Version 1)
Quarter: 2019Q4

REPORT INFORMATION
  Report Type: Spontaneous
  Country: US (occurrence: US)
  Receive Date: 20191129
  Receipt Date: 20191129
  Transmission Date: 20200122
  Serious: Yes (Other)
  Sender: FDA-Public Use
  Company Number: US-SA-2019SA328840

PATIENT
  Sex: Male

DRUGS (1)
  1. ZANTAC 75 [Suspect]
     Active Substance: RANITIDINE HYDROCHLORIDE
     Indication: PRODUCT USED FOR UNKNOWN INDICATION
     Dosage: UNK, QD (1-2 TABLET)
     Dates: start: 2007

REACTIONS (4)
  - Pain [Not Recovered/Not Resolved]
  - Impaired quality of life [Unknown]
  - Oesophageal carcinoma [Unknown]
  - Anxiety [Unknown]
